FAERS Safety Report 12497463 (Version 1)
Quarter: 2016Q2

REPORT INFORMATION
  Report Type: Spontaneous
  Country: FR (occurrence: FR)
  Receive Date: 20160624
  Receipt Date: 20160624
  Transmission Date: 20160815
  Serious: Yes (Other)
  Sender: FDA-Public Use
  Company Number: FR-ASTRAZENECA-2016SE67800

PATIENT
  Age: 69 Year
  Sex: Female
  Weight: 81 kg

DRUGS (5)
  1. SYMBICORT [Suspect]
     Active Substance: BUDESONIDE\FORMOTEROL FUMARATE DIHYDRATE
     Indication: BRONCHITIS
     Route: 055
  2. ESBERIVEN [Concomitant]
     Active Substance: TROXERUTIN
     Indication: CARDIOVASCULAR DISORDER
  3. XEROQUEL [Suspect]
     Active Substance: QUETIAPINE FUMARATE
     Route: 048
  4. AERIUS [Suspect]
     Active Substance: DESLORATADINE
     Indication: SEASONAL ALLERGY
     Route: 048
     Dates: start: 20160415, end: 20160515
  5. SYMBICORT [Suspect]
     Active Substance: BUDESONIDE\FORMOTEROL FUMARATE DIHYDRATE
     Indication: BRONCHITIS
     Route: 055
     Dates: start: 2015

REACTIONS (10)
  - Fatigue [Not Recovered/Not Resolved]
  - Cardiovascular disorder [Unknown]
  - Off label use [Unknown]
  - Intentional product use issue [Unknown]
  - Product use issue [Unknown]
  - Drug prescribing error [Unknown]
  - Weight increased [Unknown]
  - Seasonal allergy [Unknown]
  - Headache [Not Recovered/Not Resolved]
  - Blood pressure increased [Unknown]

NARRATIVE: CASE EVENT DATE: 2015
